FAERS Safety Report 11651692 (Version 1)
Quarter: 2015Q4

REPORT INFORMATION
  Report Type: Spontaneous
  Country: US (occurrence: None)
  Receive Date: 20151021
  Receipt Date: 20151021
  Transmission Date: 20160304
  Serious: Yes (Disabling)
  Sender: FDA-Public Use
  Company Number: None

PATIENT
  Age: 47 Year
  Sex: Female
  Weight: 85.73 kg

DRUGS (4)
  1. ENBREL [Suspect]
     Active Substance: ETANERCEPT
     Indication: PUSTULAR PSORIASIS
     Dosage: INJECTIONS 1 SHOT EVERY 3 MON INTO THE MUSCLE
     Route: 030
  2. HUMIRA [Suspect]
     Active Substance: ADALIMUMAB
  3. ZOLPIDEM [Concomitant]
     Active Substance: ZOLPIDEM\ZOLPIDEM TARTRATE
  4. STELARA [Suspect]
     Active Substance: USTEKINUMAB

REACTIONS (6)
  - Axillary pain [None]
  - Headache [None]
  - Limb discomfort [None]
  - Cystitis [None]
  - Musculoskeletal pain [None]
  - Arthritis [None]

NARRATIVE: CASE EVENT DATE: 20150821
